FAERS Safety Report 6220033-2 (Version None)
Quarter: 2009Q2

REPORT INFORMATION
  Report Type: 
  Country: None (occurrence: None)
  Receive Date: 20090609
  Receipt Date: 20090528
  Transmission Date: 20091009
  Serious: Yes (Hospitalization, Other)
  Sender: FDA-Public Use
  Company Number: PHHY2009CA16300

PATIENT
  Sex: Male

DRUGS (2)
  1. EXJADE [Suspect]
     Indication: IRON OVERLOAD
     Dosage: 1125 MG, UNK
     Route: 048
  2. EXJADE [Suspect]
     Indication: MYELODYSPLASTIC SYNDROME

REACTIONS (12)
  - BACTERAEMIA [None]
  - BLOOD CREATININE INCREASED [None]
  - CYSTOSCOPY [None]
  - DYSURIA [None]
  - ENURESIS [None]
  - FALL [None]
  - FEBRILE NEUTROPENIA [None]
  - GINGIVAL HYPERTROPHY [None]
  - HEPATOSPLENOMEGALY [None]
  - PROSTATIC OBSTRUCTION [None]
  - PROSTATOMEGALY [None]
  - URINARY RETENTION [None]
